FAERS Safety Report 9761253 (Version 2)
Quarter: 2014Q4

REPORT INFORMATION
  Report Type: Spontaneous
  Country: AU (occurrence: None)
  Receive Date: 20131212
  Receipt Date: 20141103
  Transmission Date: 20150529
  Serious: Yes (Other)
  Sender: FDA-Public Use
  Company Number: 1312-1564

PATIENT
  Age: 85 Year
  Sex: Female

DRUGS (1)
  1. EYLEA [Suspect]
     Active Substance: AFLIBERCEPT
     Indication: AGE-RELATED MACULAR DEGENERATION
     Route: 031
     Dates: start: 20130416

REACTIONS (4)
  - VIIth nerve paralysis [None]
  - Weight decreased [None]
  - Decreased appetite [None]
  - Ageusia [None]

NARRATIVE: CASE EVENT DATE: 2013
